FAERS Safety Report 16654602 (Version 2)
Quarter: 2019Q3

REPORT INFORMATION
  Report Type: Spontaneous
  Country: US (occurrence: US)
  Receive Date: 20190801
  Receipt Date: 20190907
  Transmission Date: 20191004
  Serious: No
  Sender: FDA-Public Use
  Company Number: US-HETERO-HET2019US00995

PATIENT
  Sex: Female
  Weight: 84 kg

DRUGS (1)
  1. LOSARTAN. [Suspect]
     Active Substance: LOSARTAN
     Indication: HYPERTENSION
     Dosage: 25 MG, TID
     Route: 048

REACTIONS (2)
  - Product taste abnormal [Not Recovered/Not Resolved]
  - Foreign body in respiratory tract [Unknown]
